FAERS Safety Report 9262006 (Version 1)
Quarter: 2013Q2

REPORT INFORMATION
  Report Type: Spontaneous
  Country: IE (occurrence: IE)
  Receive Date: 20130429
  Receipt Date: 20130429
  Transmission Date: 20140414
  Serious: Yes (Hospitalization)
  Sender: FDA-Public Use
  Company Number: IE-AMGEN-IRLSP2013028595

PATIENT
  Age: 77 Year
  Sex: Male

DRUGS (6)
  1. NEULASTA [Suspect]
     Indication: PRODUCT USED FOR UNKNOWN INDICATION
     Dosage: UNK
     Dates: start: 20130412
  2. RITUXIMAB [Concomitant]
     Indication: HIGH GRADE B-CELL LYMPHOMA BURKITT-LIKE LYMPHOMA
     Dosage: UNK
     Dates: end: 20130411
  3. CYCLOPHOSPHAMIDE [Concomitant]
     Indication: HIGH GRADE B-CELL LYMPHOMA BURKITT-LIKE LYMPHOMA
     Dosage: UNK
     Dates: end: 20130411
  4. DOXORUBICIN [Concomitant]
     Indication: HIGH GRADE B-CELL LYMPHOMA BURKITT-LIKE LYMPHOMA
     Dosage: UNK
     Dates: end: 20130411
  5. ONCOVIN [Concomitant]
     Indication: HIGH GRADE B-CELL LYMPHOMA BURKITT-LIKE LYMPHOMA
     Dosage: UNK
     Dates: end: 20130411
  6. PREDNISOLONE [Concomitant]
     Indication: HIGH GRADE B-CELL LYMPHOMA BURKITT-LIKE LYMPHOMA
     Dosage: UNK
     Dates: end: 20130411

REACTIONS (2)
  - Neutropenia [Unknown]
  - Mucosal inflammation [Unknown]
